FAERS Safety Report 4612429-7 (Version None)
Quarter: 2005Q1

REPORT INFORMATION
  Report Type: 
  Country: None (occurrence: None)
  Receive Date: 20050318
  Receipt Date: 20050307
  Transmission Date: 20050727
  Serious: Yes (Death)
  Sender: FDA-Public Use
  Company Number: US-JNJFOC-20050301753

PATIENT
  Sex: Female

DRUGS (10)
  1. REMICADE [Suspect]
     Route: 042
  2. REMICADE [Suspect]
     Indication: RHEUMATOID ARTHRITIS
     Route: 042
  3. LASIX [Concomitant]
  4. DYAZIDE [Concomitant]
  5. DYAZIDE [Concomitant]
  6. THYROID TAB [Concomitant]
  7. CALCIUM GLUCONATE [Concomitant]
  8. METHADONE [Concomitant]
  9. FOLIC ACID [Concomitant]
  10. B12 [Concomitant]
     Route: 050

REACTIONS (1)
  - DEATH [None]
